FAERS Safety Report 7515425-5 (Version None)
Quarter: 2011Q2

REPORT INFORMATION
  Report Type: 
  Country: None (occurrence: None)
  Receive Date: 20110601
  Receipt Date: 20110513
  Transmission Date: 20111010
  Serious: No
  Sender: FDA-Public Use
  Company Number: US-B.I. PHARMACEUTICALS,INC./RIDGEFIELD-2011-BP-09935BP

PATIENT
  Sex: Male

DRUGS (10)
  1. HYDROCODONE BITARTRATE [Concomitant]
     Indication: ARTHRALGIA
  2. LOVASTATIN [Concomitant]
     Indication: BLOOD CHOLESTEROL INCREASED
  3. MELATONIN [Concomitant]
     Indication: INSOMNIA
  4. PRADAXA [Suspect]
     Indication: ATRIAL FIBRILLATION
     Dosage: 300 MG
     Route: 048
     Dates: start: 20110325
  5. ALLOPURINOL [Concomitant]
     Indication: GOUT
  6. MULTIVITAMIN [Concomitant]
     Indication: MACULAR DEGENERATION
  7. MULTI-VITAMIN [Concomitant]
     Indication: SUPPLEMENTATION THERAPY
  8. METOPROLOL TARTRATE [Concomitant]
     Indication: HYPERTENSION
  9. ZALEPLON [Concomitant]
     Indication: INSOMNIA
  10. PRADAXA [Suspect]
     Indication: CEREBROVASCULAR ACCIDENT PROPHYLAXIS

REACTIONS (3)
  - GASTROOESOPHAGEAL REFLUX DISEASE [None]
  - ABDOMINAL PAIN UPPER [None]
  - FLATULENCE [None]
